FAERS Safety Report 6542246-2 (Version None)
Quarter: 2010Q1

REPORT INFORMATION
  Report Type: 
  Country: None (occurrence: None)
  Receive Date: 20100119
  Receipt Date: 20100113
  Transmission Date: 20100710
  Serious: Yes (Hospitalization)
  Sender: FDA-Public Use
  Company Number: B0626578A

PATIENT
  Sex: Male

DRUGS (3)
  1. AUGMENTIN [Suspect]
     Indication: TOOTH ABSCESS
     Dosage: 625MG THREE TIMES PER DAY
     Route: 048
     Dates: start: 20090915, end: 20090921
  2. DAFALGAN [Suspect]
     Dosage: 10TAB PER DAY
     Route: 048
     Dates: start: 20090908, end: 20090921
  3. IBUPROFEN [Suspect]
     Dosage: 400MG THREE TIMES PER DAY
     Route: 065
     Dates: start: 20090915, end: 20090921

REACTIONS (7)
  - ACCIDENTAL OVERDOSE [None]
  - ALANINE AMINOTRANSFERASE INCREASED [None]
  - ASPARTATE AMINOTRANSFERASE INCREASED [None]
  - BLOOD ALKALINE PHOSPHATASE INCREASED [None]
  - BLOOD BILIRUBIN INCREASED [None]
  - GAMMA-GLUTAMYLTRANSFERASE INCREASED [None]
  - LIVER INJURY [None]
